FAERS Safety Report 9026773 (Version 1)
Quarter: 2013Q1

REPORT INFORMATION
  Report Type: Spontaneous
  Country: US (occurrence: US)
  Receive Date: 20130123
  Receipt Date: 20130123
  Transmission Date: 20140127
  Serious: Yes (Hospitalization)
  Sender: FDA-Public Use
  Company Number: US-BAYER-2013-006834

PATIENT
  Age: 30 Year
  Sex: Female

DRUGS (3)
  1. YASMIN [Suspect]
     Indication: DYSFUNCTIONAL UTERINE BLEEDING
  2. KEFLEX [Concomitant]
     Dosage: 500 MG, UNK
  3. SYNTHROID [Concomitant]
     Indication: HYPERTHYROIDISM

REACTIONS (2)
  - Pulmonary embolism [Recovered/Resolved]
  - Deep vein thrombosis [None]
